FAERS Safety Report 19701611 (Version 2)
Quarter: 2021Q3

REPORT INFORMATION
  Report Type: Spontaneous
  Country: JP (occurrence: JP)
  Receive Date: 20210813
  Receipt Date: 20210921
  Transmission Date: 20211014
  Serious: Yes (Other)
  Sender: FDA-Public Use
  Company Number: JP-009507513-2108JPN000942J

PATIENT
  Age: 82 Year
  Sex: Male
  Weight: 55.7 kg

DRUGS (1)
  1. BRIDION [Suspect]
     Active Substance: SUGAMMADEX
     Indication: NEUROMUSCULAR BLOCKADE REVERSAL
     Dosage: 200 MILLIGRAM, 20 MG WAS ADMINISTERED AS TEST DOSE, THEN 180 MG WAS ADMINISTERED
     Route: 042
     Dates: start: 20210806, end: 20210806

REACTIONS (5)
  - Coronary artery insufficiency [Unknown]
  - Angina pectoris [Unknown]
  - Bradycardia [Unknown]
  - Electrocardiogram ST segment abnormal [Unknown]
  - Anaphylactic reaction [Recovered/Resolved]

NARRATIVE: CASE EVENT DATE: 20210806
